FAERS Safety Report 4274179-9 (Version None)
Quarter: 2004Q1

REPORT INFORMATION
  Report Type: 
  Country: None (occurrence: None)
  Receive Date: 20040115
  Receipt Date: 20040114
  Transmission Date: 20041129
  Serious: Yes (Other)
  Sender: FDA-Public Use
  Company Number: 2003188749JP

PATIENT
  Age: 51 Year
  Sex: Female
  Weight: 53 kg

DRUGS (6)
  1. AZULFIDINE [Suspect]
     Indication: RHEUMATOID ARTHRITIS
     Dosage: 500 MG/DAY, ORAL
     Route: 048
     Dates: start: 20031118, end: 20031127
  2. CEREKINON (TRIMEBUTINE MALEATE) [Concomitant]
  3. PREDNISOLONE [Concomitant]
  4. BLOPRESS (CANDESARTAN CILEXETIL) [Concomitant]
  5. ASPIRINA [Concomitant]
  6. MOBIC [Concomitant]

REACTIONS (4)
  - DYSPNOEA [None]
  - LEUKOPENIA [None]
  - PYREXIA [None]
  - URTICARIA [None]
